FAERS Safety Report 16293702 (Version 1)
Quarter: 2019Q2

REPORT INFORMATION
  Report Type: Spontaneous
  Country: US (occurrence: US)
  Receive Date: 20190509
  Receipt Date: 20190509
  Transmission Date: 20190711
  Serious: Yes (Other)
  Sender: FDA-Public Use
  Company Number: US-PFIZER INC-2019194318

PATIENT
  Age: 81 Year
  Sex: Female
  Weight: 62.37 kg

DRUGS (1)
  1. PHENYTOIN SODIUM. [Suspect]
     Active Substance: PHENYTOIN SODIUM
     Dosage: UNK

REACTIONS (6)
  - Dyskinesia [Unknown]
  - Vomiting [Unknown]
  - Swollen tongue [Recovering/Resolving]
  - Dizziness [Unknown]
  - Malaise [Unknown]
  - Speech disorder [Unknown]
